FAERS Safety Report 8206307-4 (Version None)
Quarter: 2012Q1

REPORT INFORMATION
  Report Type: 
  Country: None (occurrence: None)
  Receive Date: 20120313
  Receipt Date: 20120306
  Transmission Date: 20120608
  Serious: Yes (Other)
  Sender: FDA-Public Use
  Company Number: PHHY2010US25279

PATIENT
  Sex: Female
  Weight: 69.841 kg

DRUGS (4)
  1. GLEEVEC [Suspect]
     Dosage: 800 MG, DAILY
     Route: 048
     Dates: start: 20110104, end: 20110627
  2. ANTIBIOTICS [Concomitant]
  3. GLEEVEC [Suspect]
     Dosage: 800 MG, DAILY
     Route: 048
     Dates: start: 20100927
  4. GLEEVEC [Suspect]
     Indication: CHRONIC MYELOID LEUKAEMIA
     Dosage: 200 MG, BID
     Route: 048
     Dates: start: 20100406

REACTIONS (10)
  - FATIGUE [None]
  - BURNING SENSATION [None]
  - HYPERHIDROSIS [None]
  - DRUG INEFFECTIVE [None]
  - MUCOSAL INFLAMMATION [None]
  - DIARRHOEA [None]
  - PAIN IN EXTREMITY [None]
  - ORAL PAIN [None]
  - GLOSSODYNIA [None]
  - FEELING COLD [None]
